FAERS Safety Report 11638758 (Version 1)
Quarter: 2015Q4

REPORT INFORMATION
  Report Type: Spontaneous
  Country: FR (occurrence: FR)
  Receive Date: 20151016
  Receipt Date: 20151016
  Transmission Date: 20160304
  Serious: Yes (Other)
  Sender: FDA-Public Use
  Company Number: FR-ASTRAZENECA-2015SE99055

PATIENT
  Age: 16258 Day
  Sex: Female

DRUGS (4)
  1. TIAPRIDAL [Interacting]
     Active Substance: TIAPRIDE HYDROCHLORIDE
     Dosage: 4 DF PER DAY AS REQUIRED
     Route: 048
     Dates: start: 20150829, end: 20150830
  2. TERALITHE [Concomitant]
     Active Substance: LITHIUM CARBONATE
  3. VALIUM [Concomitant]
     Active Substance: DIAZEPAM
  4. XEROQUEL [Suspect]
     Active Substance: QUETIAPINE FUMARATE
     Route: 048

REACTIONS (3)
  - Drug interaction [Unknown]
  - Extrapyramidal disorder [Recovered/Resolved]
  - Panic attack [Unknown]

NARRATIVE: CASE EVENT DATE: 20150830
